FAERS Safety Report 8392358-6 (Version None)
Quarter: 2012Q2

REPORT INFORMATION
  Report Type: 
  Country: None (occurrence: None)
  Receive Date: 20120529
  Receipt Date: 20120514
  Transmission Date: 20120825
  Serious: Yes (Other)
  Sender: FDA-Public Use
  Company Number: US-ROCHE-1070650

PATIENT

DRUGS (2)
  1. AVASTIN [Suspect]
     Indication: COLORECTAL CANCER METASTATIC
     Dates: start: 20080701, end: 20080701
  2. AVASTIN [Suspect]
     Dates: start: 20081201, end: 20090301

REACTIONS (3)
  - PERINEAL FISTULA [None]
  - ANASTOMOTIC LEAK [None]
  - POST PROCEDURAL HAEMORRHAGE [None]
